FAERS Safety Report 7534562-2 (Version None)
Quarter: 2011Q2

REPORT INFORMATION
  Report Type: 
  Country: None (occurrence: None)
  Receive Date: 20110609
  Receipt Date: 20090910
  Transmission Date: 20111010
  Serious: Yes (Hospitalization, Disabling, Other)
  Sender: FDA-Public Use
  Company Number: PHHY2009AR39030

PATIENT
  Age: 74 Year
  Sex: Male

DRUGS (5)
  1. VALSARTAN [Concomitant]
  2. GLIMEPIRIDE [Concomitant]
  3. METFORMIN HCL [Concomitant]
     Dosage: 850 MG, UNK
  4. EXFORGE [Suspect]
     Indication: HYPERTENSION
     Dosage: 165 MG, UNK
     Dates: start: 20090501
  5. ATORVASTATIN [Concomitant]
     Dosage: 20 MG, UNK

REACTIONS (3)
  - ISCHAEMIC STROKE [None]
  - SPEECH DISORDER [None]
  - HEMIPLEGIA [None]
